FAERS Safety Report 20320100 (Version 1)
Quarter: 2022Q1

REPORT INFORMATION
  Report Type: Other
  Country: US (occurrence: None)
  Receive Date: 20220111
  Receipt Date: 20220111
  Transmission Date: 20220423
  Serious: Yes (Other)
  Sender: FDA-Public Use
  Company Number: US-ROCHE-2837192

PATIENT
  Age: 25 Year
  Sex: Male

DRUGS (3)
  1. RITUXIMAB [Suspect]
     Active Substance: RITUXIMAB
     Indication: Evans syndrome
     Route: 065
  2. VINCRISTINE [Suspect]
     Active Substance: VINCRISTINE
     Indication: Evans syndrome
     Route: 065
  3. DANAZOL [Concomitant]
     Active Substance: DANAZOL
     Indication: Evans syndrome

REACTIONS (1)
  - Infection [Unknown]
